FAERS Safety Report 13568622 (Version 1)
Quarter: 2017Q2

REPORT INFORMATION
  Report Type: Spontaneous
  Country: US (occurrence: US)
  Receive Date: 20170522
  Receipt Date: 20170522
  Transmission Date: 20170830
  Serious: Yes (Life-Threatening)
  Sender: FDA-Public Use
  Company Number: None

PATIENT
  Age: 9 Year
  Sex: Female
  Weight: 27.9 kg

DRUGS (1)
  1. POLYETHYLENE GLYCOL 3350. [Suspect]
     Active Substance: POLYETHYLENE GLYCOL 3350
     Indication: CONSTIPATION
     Dosage: 6 CAPFUL DAILY ORAL
     Route: 048
     Dates: start: 20170513, end: 20170516

REACTIONS (6)
  - Hyperventilation [None]
  - Crying [None]
  - Panic attack [None]
  - Depressed mood [None]
  - Suicidal ideation [None]
  - Anxiety [None]

NARRATIVE: CASE EVENT DATE: 20170516
